FAERS Safety Report 20920437 (Version 1)
Quarter: 2022Q2

REPORT INFORMATION
  Report Type: Spontaneous
  Country: US (occurrence: US)
  Receive Date: 20220606
  Receipt Date: 20220606
  Transmission Date: 20220720
  Serious: Yes (Hospitalization)
  Sender: FDA-Public Use
  Company Number: US-NOVARTISPH-NVSC2022US128214

PATIENT
  Sex: Female

DRUGS (2)
  1. HYCAMTIN [Suspect]
     Active Substance: TOPOTECAN HYDROCHLORIDE
     Indication: Lung carcinoma cell type unspecified recurrent
     Dosage: 5 MG, QD (STRENGTH: 1 MG), (4-1 MG CAPSULES) DAILY FOR 5 DAYS IN 21 CYCLE
     Route: 048
     Dates: start: 20220412
  2. HYCAMTIN [Suspect]
     Active Substance: TOPOTECAN HYDROCHLORIDE
     Dosage: 5 MG, QD (STRENGTH: 0.25 MG), 4-0.25 MG CAPSULES, DAILY FOR 5 DAYS IN 21 CYCLE)
     Route: 048
     Dates: start: 20220412

REACTIONS (3)
  - White blood cell count decreased [Unknown]
  - Mental disorder [Unknown]
  - Ill-defined disorder [Unknown]
